FAERS Safety Report 25625583 (Version 1)
Quarter: 2025Q3

REPORT INFORMATION
  Report Type: Report from Study
  Country: BR (occurrence: BR)
  Receive Date: 20250731
  Receipt Date: 20250731
  Transmission Date: 20251020
  Serious: Yes (Other)
  Sender: ABBVIE
  Company Number: BR-ABBOTT-2025A-1401244

PATIENT
  Sex: Male
  Weight: 74 kg

DRUGS (1)
  1. DEPAKOTE [Suspect]
     Active Substance: DIVALPROEX SODIUM
     Indication: Seizure prophylaxis
     Route: 048

REACTIONS (9)
  - Seizure [Recovered/Resolved with Sequelae]
  - Mood altered [Recovered/Resolved]
  - Off label use [Unknown]
  - Discomfort [Recovered/Resolved with Sequelae]
  - Wrong technique in product usage process [Unknown]
  - Product residue present [Not Recovered/Not Resolved]
  - Diarrhoea [Recovered/Resolved with Sequelae]
  - Product quality issue [Unknown]
  - Drug ineffective [Unknown]
